FAERS Safety Report 5201614-1 (Version None)
Quarter: 2006Q4

REPORT INFORMATION
  Report Type: 
  Country: None (occurrence: None)
  Receive Date: 20061006
  Receipt Date: 20060209
  Transmission Date: 20070319
  Serious: Yes (Other)
  Sender: FDA-Public Use
  Company Number: 200512286BWH

PATIENT
  Age: 72 Year
  Sex: Female
  Weight: 58.514 kg

DRUGS (6)
  1. CIPRO XR [Suspect]
     Indication: URINARY TRACT INFECTION
     Dosage: 500 MG, QD, ORAL
     Route: 048
     Dates: start: 20050825
  2. PRAVACHOL [Concomitant]
  3. TRICOR [Concomitant]
  4. OXYBUTYN [Concomitant]
  5. QUININE SULFATE [Concomitant]
  6. OXYCODONE HCL [Concomitant]

REACTIONS (22)
  - ABDOMINAL DISTENSION [None]
  - ANOREXIA [None]
  - ARTHRALGIA [None]
  - ARTHRITIS [None]
  - ASTHENIA [None]
  - BURNING SENSATION [None]
  - CHILLS [None]
  - DEHYDRATION [None]
  - DIZZINESS [None]
  - HYPERHIDROSIS [None]
  - HYPERSENSITIVITY [None]
  - LIMB DISCOMFORT [None]
  - MYALGIA [None]
  - NIPPLE PAIN [None]
  - OEDEMA PERIPHERAL [None]
  - PARAESTHESIA [None]
  - PYREXIA [None]
  - RASH [None]
  - TENDON RUPTURE [None]
  - TREMOR [None]
  - VULVOVAGINAL DISCOMFORT [None]
  - WEIGHT DECREASED [None]
